FAERS Safety Report 7440556-8 (Version None)
Quarter: 2011Q2

REPORT INFORMATION
  Report Type: 
  Country: None (occurrence: None)
  Receive Date: 20110427
  Receipt Date: 20110419
  Transmission Date: 20111010
  Serious: Yes (Hospitalization)
  Sender: FDA-Public Use
  Company Number: A0923581A

PATIENT
  Age: 14 Year
  Sex: Female

DRUGS (4)
  1. ACETAMINOPHEN [Concomitant]
  2. ONDANSETRON [Suspect]
     Route: 042
     Dates: start: 20110331, end: 20110331
  3. MOTRIN [Concomitant]
  4. ONDANSETRON [Suspect]
     Indication: NAUSEA
     Route: 048
     Dates: start: 20110321, end: 20110415

REACTIONS (6)
  - CONVERSION DISORDER [None]
  - CRYING [None]
  - ANXIETY [None]
  - ABNORMAL BEHAVIOUR [None]
  - EMOTIONAL DISORDER [None]
  - BILE DUCT OBSTRUCTION [None]
